FAERS Safety Report 9878089 (Version 1)
Quarter: 2014Q1

REPORT INFORMATION
  Report Type: Spontaneous
  Country: US (occurrence: US)
  Receive Date: 20140206
  Receipt Date: 20140206
  Transmission Date: 20141002
  Serious: No
  Sender: FDA-Public Use
  Company Number: US-009507513-1402USA002455

PATIENT
  Age: 3 Year
  Sex: Male

DRUGS (2)
  1. SINGULAIR [Suspect]
     Dosage: 4 MG, QD
     Route: 048
  2. ALBUTEROL SULFATE [Concomitant]
     Dosage: UNK
     Route: 055

REACTIONS (1)
  - Rash generalised [Unknown]
